FAERS Safety Report 9363955 (Version 2)
Quarter: 2013Q3

REPORT INFORMATION
  Report Type: Report from Study
  Country: CA (occurrence: CA)
  Receive Date: 20130624
  Receipt Date: 20130820
  Transmission Date: 20140515
  Serious: Yes (Hospitalization, Other)
  Sender: FDA-Public Use
  Company Number: CA-JNJFOC-20130612632

PATIENT
  Sex: Male

DRUGS (7)
  1. REMICADE [Suspect]
     Indication: CROHN^S DISEASE
     Route: 042
     Dates: start: 20130228
  2. CALCIUM WITH VITAMIN D [Concomitant]
     Dosage: 1 TABLETS TWICE IN 1 DAY.
     Route: 065
  3. STATEX [Concomitant]
     Dosage: AS NEEDED
     Route: 065
  4. PAROXETINE [Concomitant]
     Route: 065
  5. IMURAN [Concomitant]
     Dosage: 50 MG TWO AND HALF TABLETS TWICE A DAY.
     Route: 065
  6. PANTOPRAZOLE [Concomitant]
     Route: 065
  7. ZOPICLONE [Concomitant]
     Dosage: 2 TABLETS AT BED TIME AS NECESSARY
     Route: 065

REACTIONS (2)
  - Anaemia [Unknown]
  - Intestinal stenosis [Unknown]
